FAERS Safety Report 7545281-0 (Version None)
Quarter: 2011Q2

REPORT INFORMATION
  Report Type: 
  Country: None (occurrence: None)
  Receive Date: 20110613
  Receipt Date: 20110613
  Transmission Date: 20111010
  Serious: Yes (Hospitalization)
  Sender: FDA-Public Use
  Company Number: None

PATIENT
  Sex: Male
  Weight: 95.2554 kg

DRUGS (2)
  1. CIDOFOVIR [Suspect]
     Indication: CYTOMEGALOVIRUS INFECTION
     Dosage: 200MG BIW PO
     Route: 048
     Dates: start: 20110328, end: 20110418
  2. CIDOFOVIR [Suspect]
     Indication: BK VIRUS INFECTION
     Dosage: 200MG BIW PO
     Route: 048
     Dates: start: 20110328, end: 20110418

REACTIONS (2)
  - DIARRHOEA [None]
  - ABDOMINAL PAIN [None]
